FAERS Safety Report 7500285-9 (Version None)
Quarter: 2011Q2

REPORT INFORMATION
  Report Type: 
  Country: None (occurrence: None)
  Receive Date: 20110524
  Receipt Date: 20110519
  Transmission Date: 20111010
  Serious: Yes (Life-Threatening)
  Sender: FDA-Public Use
  Company Number: NO-ASTRAZENECA-2011SE30698

PATIENT
  Age: 39 Year
  Sex: Female

DRUGS (1)
  1. QUETIAPINE [Suspect]
     Dosage: LARGE AMOUNT
     Route: 048

REACTIONS (9)
  - ACUTE RESPIRATORY DISTRESS SYNDROME [None]
  - HYPOXIC-ISCHAEMIC ENCEPHALOPATHY [None]
  - RHABDOMYOLYSIS [None]
  - METABOLIC ACIDOSIS [None]
  - INCORRECT DOSE ADMINISTERED [None]
  - BRADYCARDIA [None]
  - HYPOTENSION [None]
  - STATUS EPILEPTICUS [None]
  - SEPSIS [None]
